FAERS Safety Report 5626615-0 (Version None)
Quarter: 2008Q1

REPORT INFORMATION
  Report Type: 
  Country: None (occurrence: None)
  Receive Date: 20080214
  Receipt Date: 20080205
  Transmission Date: 20080703
  Serious: Yes (Life-Threatening)
  Sender: FDA-Public Use
  Company Number: ES-ELI_LILLY_AND_COMPANY-ES200802002305

PATIENT
  Age: 35 Year
  Sex: Female

DRUGS (5)
  1. DULOXETINE HYDROCHLORIDE [Suspect]
     Indication: MAJOR DEPRESSION
     Dosage: 120 MG, DAILY (1/D)
     Route: 048
     Dates: start: 20070607, end: 20070912
  2. ALPRAZOLAM [Concomitant]
     Dosage: 1 MG, UNKNOWN
     Route: 048
     Dates: start: 20070607
  3. LEDERFOLIN [Concomitant]
     Dosage: 15 MG, UNKNOWN
     Route: 048
     Dates: start: 20061221, end: 20070910
  4. FERO-GRADUMET [Concomitant]
     Dosage: UNK, UNKNOWN
     Route: 048
  5. EUTIROX [Concomitant]
     Indication: HYPOTHYROIDISM
     Dosage: 50 UG, DAILY (1/D)
     Route: 048
     Dates: start: 20070124

REACTIONS (1)
  - HEPATITIS [None]
